FAERS Safety Report 21741445 (Version 1)
Quarter: 2022Q4

REPORT INFORMATION
  Report Type: Spontaneous
  Country: DE (occurrence: DE)
  Receive Date: 20221216
  Receipt Date: 20221216
  Transmission Date: 20230112
  Serious: Yes (Other)
  Sender: FDA-Public Use
  Company Number: DE-ROCHE-3228362

PATIENT
  Age: 78 Year
  Sex: Male

DRUGS (19)
  1. BENDAMUSTINE HYDROCHLORIDE [Suspect]
     Active Substance: BENDAMUSTINE HYDROCHLORIDE
     Indication: Diffuse large B-cell lymphoma
     Dosage: (POLATUZUMAB WITH RITUXIMAB AND BENDAMUSTIN)
     Route: 042
     Dates: start: 20200701, end: 20201101
  2. BENDAMUSTINE HYDROCHLORIDE [Suspect]
     Active Substance: BENDAMUSTINE HYDROCHLORIDE
     Dosage: (POLATUZUMAB WITH RITUXIMAB AND BENDAMUSTIN)
     Route: 042
     Dates: start: 20220311, end: 20220810
  3. ETOPOSIDE [Suspect]
     Active Substance: ETOPOSIDE
     Indication: Diffuse large B-cell lymphoma
     Dosage: (BEAM + AUTO-SCT)
     Route: 065
     Dates: start: 20140901, end: 20141001
  4. VINCRISTINE [Suspect]
     Active Substance: VINCRISTINE
     Indication: Diffuse large B-cell lymphoma
     Route: 065
     Dates: start: 20030901, end: 20040101
  5. PREDNISONE [Suspect]
     Active Substance: PREDNISONE
     Indication: Diffuse large B-cell lymphoma
     Dosage: (R-CHOP)
     Route: 065
     Dates: start: 20030901, end: 20040101
  6. DOXORUBICIN [Suspect]
     Active Substance: DOXORUBICIN
     Indication: Diffuse large B-cell lymphoma
     Dosage: (R-CHOP)
     Route: 065
     Dates: start: 20030901, end: 20040101
  7. DEXAMETHASONE [Suspect]
     Active Substance: DEXAMETHASONE
     Indication: Diffuse large B-cell lymphoma
     Route: 065
     Dates: start: 20140501, end: 20140601
  8. MELPHALAN [Suspect]
     Active Substance: MELPHALAN
     Indication: Diffuse large B-cell lymphoma
     Dosage: .(BEAM + AUTO-SCT)
     Route: 065
     Dates: start: 20140901, end: 20141001
  9. CARMUSTINE [Suspect]
     Active Substance: CARMUSTINE
     Indication: Diffuse large B-cell lymphoma
     Dosage: BEAM + AUTO-SCT)
     Route: 065
     Dates: start: 20140901, end: 20141001
  10. CISPLATIN [Suspect]
     Active Substance: CISPLATIN
     Indication: Diffuse large B-cell lymphoma
     Route: 065
     Dates: start: 20140501, end: 20140601
  11. RITUXIMAB [Suspect]
     Active Substance: RITUXIMAB
     Indication: Diffuse large B-cell lymphoma
     Dosage: .(R-CHOP)
     Route: 065
     Dates: start: 20030901, end: 20040101
  12. RITUXIMAB [Suspect]
     Active Substance: RITUXIMAB
     Dosage: UNK UNK, UNKNOWN FREQ.(R-DHAP)
     Route: 065
     Dates: start: 20140501, end: 20140601
  13. RITUXIMAB [Suspect]
     Active Substance: RITUXIMAB
     Dosage: UNK UNK, UNKNOWN FREQ.(POLATUZUMAB WITH RITUXIMAB AND BENDAMUSTIN)
     Route: 065
     Dates: start: 20200701, end: 20201101
  14. RITUXIMAB [Suspect]
     Active Substance: RITUXIMAB
     Dosage: UNK UNK, UNKNOWN FREQ.(POLATUZUMAB WITH RITUXIMAB AND BENDAMUSTIN)
     Route: 065
     Dates: start: 20220311, end: 20220810
  15. POLATUZUMAB VEDOTIN [Suspect]
     Active Substance: POLATUZUMAB VEDOTIN
     Indication: Diffuse large B-cell lymphoma
     Dosage: .(POLATUZUMAB WITH RITUXIMAB AND BENDAMUSTIN)
     Route: 065
     Dates: start: 20200701, end: 20201101
  16. POLATUZUMAB VEDOTIN [Suspect]
     Active Substance: POLATUZUMAB VEDOTIN
     Dosage: .(POLATUZUMAB WITH RITUXIMAB AND BENDAMUSTIN)
     Route: 065
     Dates: start: 20220311, end: 20220810
  17. CYCLOPHOSPHAMIDE [Suspect]
     Active Substance: CYCLOPHOSPHAMIDE
     Indication: Diffuse large B-cell lymphoma
     Dosage: R-CHOP)
     Route: 065
     Dates: start: 20030901, end: 20040101
  18. CYTARABINE [Suspect]
     Active Substance: CYTARABINE
     Indication: Diffuse large B-cell lymphoma
     Route: 065
     Dates: start: 20140501, end: 20140601
  19. CYTARABINE [Suspect]
     Active Substance: CYTARABINE
     Dosage: .(BEAM + AUTO-SCT)
     Route: 065
     Dates: start: 20140901, end: 20141001

REACTIONS (2)
  - Lymphoma [Not Recovered/Not Resolved]
  - Off label use [Unknown]

NARRATIVE: CASE EVENT DATE: 20200701
